FAERS Safety Report 19498074 (Version 1)
Quarter: 2021Q3

REPORT INFORMATION
  Report Type: Spontaneous
  Country: CH (occurrence: CH)
  Receive Date: 20210706
  Receipt Date: 20210706
  Transmission Date: 20211014
  Serious: Yes (Death, Life-Threatening, Hospitalization)
  Sender: FDA-Public Use
  Company Number: CH-009507513-2106CHE008077

PATIENT
  Age: 72 Year
  Sex: Male

DRUGS (7)
  1. CO VALSARTAN SPIRIG HC [Concomitant]
     Route: 048
     Dates: end: 20210419
  2. COVID?19 VACCINE [Concomitant]
     Route: 030
     Dates: end: 20210414
  3. ALIMTA [Concomitant]
     Active Substance: PEMETREXED DISODIUM
     Route: 042
     Dates: start: 20200805, end: 20210223
  4. ALLOPUR [Concomitant]
     Active Substance: ALLOPURINOL
     Route: 048
     Dates: end: 20210503
  5. ASPIRIN CARDIO [Concomitant]
     Active Substance: ASPIRIN
     Route: 048
     Dates: end: 20210503
  6. KEYTRUDA [Suspect]
     Active Substance: PEMBROLIZUMAB
     Dosage: 200 MILLIGRAM, Q3W
     Route: 042
     Dates: start: 20200805, end: 20210315
  7. ATORVASTATIN PFIZER [Concomitant]
     Active Substance: ATORVASTATIN
     Route: 048
     Dates: end: 20210419

REACTIONS (3)
  - Pneumonitis [Fatal]
  - Pulmonary alveolar haemorrhage [Fatal]
  - Alveolitis [Fatal]

NARRATIVE: CASE EVENT DATE: 20210403
